FAERS Safety Report 4364388-2 (Version None)
Quarter: 2004Q2

REPORT INFORMATION
  Report Type: 
  Country: None (occurrence: None)
  Receive Date: 20040521
  Receipt Date: 20040504
  Transmission Date: 20050107
  Serious: Yes (Hospitalization)
  Sender: FDA-Public Use
  Company Number: A-CH2004-05507

PATIENT
  Age: 34 Year
  Sex: Female
  Weight: 50 kg

DRUGS (16)
  1. TRACLEER [Suspect]
     Indication: SKIN ULCER
     Dosage: 62.5 MG, BID, ORAL
     Route: 048
     Dates: start: 20040306, end: 20040318
  2. ILOMEDINE (ILOPROST) [Concomitant]
  3. DALACIN (CLINDAMYCIN HYDROCHLORIDE) [Concomitant]
  4. OMEPRAZOLE [Concomitant]
  5. PAROXETINE HCL [Concomitant]
  6. FELODIPINE [Concomitant]
  7. CIPROFLOXACIN [Concomitant]
  8. MORPHINE SULFATE [Concomitant]
  9. ACTISKENAN [Concomitant]
  10. ASPIRIN [Concomitant]
  11. TRANXENE [Concomitant]
  12. NICORETTE PATCH (NICOTINE) PATCH [Concomitant]
  13. LEVONORGESTREL [Concomitant]
  14. FORLAX (MACROGOL) [Concomitant]
  15. STILNOX (ZOLPIDEM) [Concomitant]
  16. PYOSTACINE (PRISTINAMYCIN) [Concomitant]

REACTIONS (10)
  - ANAEMIA [None]
  - CONDITION AGGRAVATED [None]
  - DYSPNOEA [None]
  - FACE OEDEMA [None]
  - GAMMA-GLUTAMYLTRANSFERASE INCREASED [None]
  - INFECTED SKIN ULCER [None]
  - MEDICATION ERROR [None]
  - OEDEMA [None]
  - PERICARDIAL EFFUSION [None]
  - PLEURAL EFFUSION [None]
